FAERS Safety Report 11338651 (Version 1)
Quarter: 2015Q3

REPORT INFORMATION
  Report Type: Spontaneous
  Country: US (occurrence: US)
  Receive Date: 20150803
  Receipt Date: 20150803
  Transmission Date: 20151125
  Serious: Yes (Other)
  Sender: FDA-Public Use
  Company Number: US-ELI_LILLY_AND_COMPANY-US200801002971

PATIENT
  Age: 15 Year
  Sex: Female

DRUGS (2)
  1. DEPAKOTE [Concomitant]
     Active Substance: DIVALPROEX SODIUM
     Indication: SEIZURE
  2. STRATTERA [Suspect]
     Active Substance: ATOMOXETINE HYDROCHLORIDE
     Indication: ATTENTION DEFICIT/HYPERACTIVITY DISORDER
     Dosage: 60 MG, UNK
     Dates: start: 200711, end: 20080102

REACTIONS (3)
  - Aspartate aminotransferase abnormal [Unknown]
  - Seizure [Unknown]
  - Alanine aminotransferase abnormal [Unknown]

NARRATIVE: CASE EVENT DATE: 20080102
